FAERS Safety Report 8450768 (Version 4)
Quarter: 2013Q1

REPORT INFORMATION
  Report Type: Spontaneous
  Country: KR (occurrence: None)
  Receive Date: 20120301
  Receipt Date: 20130304
  Transmission Date: 20140127
  Serious: Yes (Hospitalization)
  Sender: FDA-Public Use
  Company Number: KR-JNJFOC-20111013020

PATIENT
  Age: 77 Year
  Sex: Male
  Weight: 58 kg

DRUGS (43)
  1. DACOGEN [Suspect]
     Indication: MYELODYSPLASTIC SYNDROME
     Dosage: 20 MG/M2, 1 IN 1 DAY, INTRAVENOUS
     Route: 042
     Dates: start: 20111005, end: 20111008
  2. MAGNESIUM OXIDE (MAGNESIUM OXIDE) [Concomitant]
  3. PAIN MEDICATION (ANALGESICS) [Concomitant]
  4. LEVOBACT (LEVOFLOXACIN) [Concomitant]
  5. MACPERAN (METOCLOPRAMIDE HYDROCHLORIDE) [Concomitant]
  6. MAXIPIME (CEFEPIME HYDROCHLORIDE) [Concomitant]
  7. TARGOCID (TEICOPLANIN) [Concomitant]
  8. NORZYME (PANCREATIN) [Concomitant]
  9. GASTER [Concomitant]
  10. ZYLORIC (ALLOPURINOL) [Concomitant]
  11. COLCHICINE (COLCHICINE) [Concomitant]
  12. ADCAL (LEKOVIT CA) [Concomitant]
  13. FEROBA YOU SR (FERROUS SULFATE) [Concomitant]
  14. METHYLON (METHYLPREDNISOLONE) [Concomitant]
  15. MUCOSTA (REBAMIPIDE) [Concomitant]
  16. ULTRACET (ULTRACET) [Concomitant]
  17. LEGALON (SILYBUM MARIANUM) [Concomitant]
  18. EXJADE (DEFERASIROX) [Concomitant]
  19. FLUCONAZOLE (FLUCONAZOLE) [Concomitant]
  20. MEIACT (CEFDITOREN PIVOXIL) [Concomitant]
  21. SEPTRIN (BACTRIM/00086101/) [Concomitant]
  22. GANATON (ITOPRIDE HYDROCHLORIDE) [Concomitant]
  23. FLOMAX (TAMSULOSIN HYDROCHLORIDE) [Concomitant]
  24. Q-ZYME (DIGESTIVES, INCL ENZYMES) [Concomitant]
  25. TYLENOL ER )PARACETAMOL) [Concomitant]
  26. HARNAL D (TAMSULOSIN HYDROCHLORIDE) [Concomitant]
  27. ATROVENT UDV (IPRATROPIUM BROMIDE) [Concomitant]
  28. MUCOMYST (ACETYLCYSTEINE) (ACETYLCYSTINE) [Concomitant]
  29. LASIX (FUROSEMIDE) [Concomitant]
  30. ALBUMIN (ALBUMIN) [Concomitant]
  31. TRANSAMIN 9TRANEXAMIC ACID) [Concomitant]
  32. GLOBULIN-S (NORMAL HUMAN IMMUNOGLOBULIN) [Concomitant]
  33. MACPERAN (METOCLOPRAMIDE HYDROCHLORIDE) [Concomitant]
  34. MAGNESIUM (MAGNESIUM) [Concomitant]
  35. MAGNESIUM (MAGNESIUM) [Concomitant]
  36. KALIMATE GRANULES (CALCIUM POLYSTYRENE SULFONATE) [Concomitant]
  37. RECOMIDE (REBAMIPIDE) [Concomitant]
  38. DANAZOL [Suspect]
  39. CIMETIDINE (CIMETIDINE) [Concomitant]
  40. EXOPERIN (EPERISONE) [Concomitant]
  41. GRASIN (FILGRASTIM) UNSPECIFIED [Concomitant]
  42. SPORANOX (ITRACONAZOLE) SOLUTION [Concomitant]
  43. SPORANOX (ITRACONAZOLE) INJECTION [Concomitant]

REACTIONS (9)
  - Staphylococcus test positive [None]
  - Lobar pneumonia [None]
  - Coronary artery stenosis [None]
  - Blood glucose decreased [None]
  - Colitis [None]
  - Decreased appetite [None]
  - Asthenia [None]
  - Blood pressure decreased [None]
  - Pulmonary oedema [None]
